FAERS Safety Report 21038614 (Version 1)
Quarter: 2022Q3

REPORT INFORMATION
  Report Type: Spontaneous
  Country: US (occurrence: US)
  Receive Date: 20220704
  Receipt Date: 20220704
  Transmission Date: 20221027
  Serious: Yes (Disabling, Other)
  Sender: FDA-Public Use
  Company Number: US-JNJFOC-20220659729

PATIENT
  Sex: Female

DRUGS (3)
  1. INVEGA SUSTENNA [Suspect]
     Active Substance: PALIPERIDONE PALMITATE
     Indication: Product used for unknown indication
     Route: 030
  2. INVEGA SUSTENNA [Suspect]
     Active Substance: PALIPERIDONE PALMITATE
  3. INVEGA SUSTENNA [Suspect]
     Active Substance: PALIPERIDONE PALMITATE

REACTIONS (11)
  - Wheelchair user [Unknown]
  - Arrhythmia [Unknown]
  - Heat stroke [Unknown]
  - Adverse drug reaction [Unknown]
  - Hypersensitivity [Unknown]
  - Overdose [Unknown]
  - Panic attack [Unknown]
  - Dyspnoea [Unknown]
  - Fatigue [Unknown]
  - Pain [Unknown]
  - Muscle rigidity [Unknown]
